FAERS Safety Report 14023512 (Version 2)
Quarter: 2017Q4

REPORT INFORMATION
  Report Type: Spontaneous
  Country: US (occurrence: US)
  Receive Date: 20170929
  Receipt Date: 20171004
  Transmission Date: 20180321
  Serious: No
  Sender: FDA-Public Use
  Company Number: US-BAYER-2017-186932

PATIENT
  Sex: Female
  Weight: 54.97 kg

DRUGS (1)
  1. MIRALAX [Suspect]
     Active Substance: POLYETHYLENE GLYCOL 3350
     Indication: GASTROINTESTINAL DISORDER
     Dosage: 1 CAPFUL DOSE
     Route: 048

REACTIONS (4)
  - Incorrect drug administration duration [Unknown]
  - Product contamination physical [Unknown]
  - Product use issue [Unknown]
  - Poor quality drug administered [Unknown]
